FAERS Safety Report 7105765-6 (Version None)
Quarter: 2010Q4

REPORT INFORMATION
  Report Type: 
  Country: None (occurrence: None)
  Receive Date: 20101116
  Receipt Date: 20101104
  Transmission Date: 20110411
  Serious: Yes (Other)
  Sender: FDA-Public Use
  Company Number: PHHY2010US75342

PATIENT
  Sex: Female

DRUGS (1)
  1. SANDOSTATIN [Suspect]

REACTIONS (2)
  - CHEST PAIN [None]
  - PLEURISY [None]
